FAERS Safety Report 9454662 (Version 1)
Quarter: 2013Q3

REPORT INFORMATION
  Report Type: Spontaneous
  Country: TH (occurrence: TH)
  Receive Date: 20130812
  Receipt Date: 20130812
  Transmission Date: 20140515
  Serious: Yes (Hospitalization, Disabling)
  Sender: FDA-Public Use
  Company Number: TH-B.I. PHARMACEUTICALS,INC./RIDGEFIELD-2013-BI-23822RT

PATIENT
  Age: 68 Year
  Sex: Male

DRUGS (3)
  1. PRADAXA [Suspect]
     Indication: CEREBROVASCULAR ACCIDENT PROPHYLAXIS
     Dosage: 220 MG
     Dates: end: 20130206
  2. PRADAXA [Suspect]
     Indication: ATRIAL FIBRILLATION
  3. OLMETEC [Concomitant]
     Indication: HYPERTENSION
     Dosage: 20 MG

REACTIONS (1)
  - Embolic stroke [Recovered/Resolved with Sequelae]
